FAERS Safety Report 8302498-5 (Version None)
Quarter: 2012Q1

REPORT INFORMATION
  Report Type: 
  Country: None (occurrence: None)
  Receive Date: 20120326
  Receipt Date: 20110513
  Transmission Date: 20120608
  Serious: Yes (Hospitalization)
  Sender: FDA-Public Use
  Company Number: PHHY2011US19213

PATIENT
  Age: 69 Year
  Sex: Male

DRUGS (12)
  1. DOXAZOSIN MESYLATE [Concomitant]
  2. OMEPRAZOLE [Concomitant]
  3. LOVASTATIN [Concomitant]
  4. VITAMIN D [Concomitant]
  5. PROPOXYPHENE HYDROCHLORIDE [Concomitant]
  6. ASPIRIN [Concomitant]
  7. TASIGNA [Suspect]
     Indication: CHRONIC MYELOID LEUKAEMIA
     Dosage: 400 MG, BID, ORAL ; 400 MG, BID, ORAL ;  400 MG, BID, ORAL ; 400 MG, BID
     Route: 048
     Dates: start: 20100813, end: 20100818
  8. TASIGNA [Suspect]
     Indication: CHRONIC MYELOID LEUKAEMIA
     Dosage: 400 MG, BID, ORAL ; 400 MG, BID, ORAL ;  400 MG, BID, ORAL ; 400 MG, BID
     Route: 048
     Dates: end: 20100901
  9. TASIGNA [Suspect]
     Indication: CHRONIC MYELOID LEUKAEMIA
     Dosage: 400 MG, BID, ORAL ; 400 MG, BID, ORAL ;  400 MG, BID, ORAL ; 400 MG, BID
     Route: 048
     Dates: start: 20101120, end: 20101129
  10. TASIGNA [Suspect]
     Indication: CHRONIC MYELOID LEUKAEMIA
     Dosage: 400 MG, BID, ORAL ; 400 MG, BID, ORAL ;  400 MG, BID, ORAL ; 400 MG, BID
     Route: 048
     Dates: end: 20101116
  11. LISINOPRIL [Concomitant]
  12. LOVAZA [Concomitant]

REACTIONS (3)
  - HEADACHE [None]
  - CORONARY ARTERY DISEASE [None]
  - RASH [None]
